FAERS Safety Report 13663501 (Version 1)
Quarter: 2017Q2

REPORT INFORMATION
  Report Type: Spontaneous
  Country: US (occurrence: US)
  Receive Date: 20170619
  Receipt Date: 20170619
  Transmission Date: 20170830
  Serious: No
  Sender: FDA-Public Use
  Company Number: US-PFIZER INC-2017258560

PATIENT
  Age: 76 Year
  Sex: Male
  Weight: 56.7 kg

DRUGS (4)
  1. SUTENT [Suspect]
     Active Substance: SUNITINIB MALATE
     Indication: GASTROINTESTINAL STROMAL TUMOUR
     Dosage: 50 MG, CYCLIC (28 DAYS ON AND OFF 14 DAYS)
     Route: 048
     Dates: start: 20170506
  2. PROPRANOLOL [Concomitant]
     Active Substance: PROPRANOLOL HYDROCHLORIDE
     Dosage: 10 MG, 2X/DAY
  3. AZILECT [Concomitant]
     Active Substance: RASAGILINE MESYLATE
     Indication: PARKINSON^S DISEASE
     Dosage: UNK
     Dates: start: 201101
  4. AMLODIPINE BESILATE [Concomitant]
     Active Substance: AMLODIPINE BESYLATE
     Indication: BLOOD PRESSURE MEASUREMENT
     Dosage: 2.5 MG, DAILY
     Dates: start: 20170530

REACTIONS (11)
  - Skin infection [Recovering/Resolving]
  - Fungal infection [Recovering/Resolving]
  - Epistaxis [Not Recovered/Not Resolved]
  - Oral pain [Recovering/Resolving]
  - Onychomycosis [Recovering/Resolving]
  - Stomatitis [Recovering/Resolving]
  - Cheilitis [Unknown]
  - Fatigue [Recovering/Resolving]
  - Ageusia [Recovering/Resolving]
  - Anosmia [Recovering/Resolving]
  - Liver disorder [Unknown]
